FAERS Safety Report 5697394-6 (Version None)
Quarter: 2008Q2

REPORT INFORMATION
  Report Type: 
  Country: None (occurrence: None)
  Receive Date: 20080407
  Receipt Date: 20080401
  Transmission Date: 20081010
  Serious: Yes (Other)
  Sender: FDA-Public Use
  Company Number: PHHY2008AT04259

PATIENT
  Sex: Male

DRUGS (3)
  1. CERTICAN [Suspect]
     Indication: ORGAN TRANSPLANT
  2. SANDIMMUNE [Suspect]
     Indication: ORGAN TRANSPLANT
  3. CORTISONE [Concomitant]
     Indication: ORGAN TRANSPLANT

REACTIONS (2)
  - BONE PAIN [None]
  - OSTEONECROSIS [None]
